FAERS Safety Report 9055565 (Version 1)
Quarter: 2013Q1

REPORT INFORMATION
  Report Type: Spontaneous
  Country: US (occurrence: US)
  Receive Date: 20130206
  Receipt Date: 20130206
  Transmission Date: 20140127
  Serious: Yes (Hospitalization)
  Sender: FDA-Public Use
  Company Number: US-INCYTE CORPORATION-2013IN000220

PATIENT
  Age: 70 None
  Sex: Male

DRUGS (8)
  1. JAKAFI [Suspect]
     Dosage: 20 MG, BID
     Route: 048
  2. ATENOLOL [Concomitant]
  3. DIGOXIN [Concomitant]
  4. GABAPENTIN [Concomitant]
  5. ALLOPURINOL [Concomitant]
  6. AMBIEN [Concomitant]
  7. SPIRONOLACTONE [Concomitant]
  8. FUROSEMIDE [Concomitant]

REACTIONS (3)
  - Hernia [Unknown]
  - Post procedural infection [Unknown]
  - Postoperative adhesion [Unknown]
